FAERS Safety Report 7628952-7 (Version None)
Quarter: 2011Q3

REPORT INFORMATION
  Report Type: 
  Country: None (occurrence: None)
  Receive Date: 20110722
  Receipt Date: 20110713
  Transmission Date: 20111222
  Serious: Yes (Hospitalization)
  Sender: FDA-Public Use
  Company Number: US-BAYER-2010-002107

PATIENT
  Age: 34 Year
  Sex: Female
  Weight: 45.351 kg

DRUGS (12)
  1. YAZ [Suspect]
     Indication: PRODUCT USED FOR UNKNOWN INDICATION
     Dosage: UNK
     Dates: start: 20080201
  2. TYLENOL-500 [Concomitant]
     Route: 048
  3. DOXYCYCLINE [Concomitant]
     Route: 048
  4. NAPROXEN [Concomitant]
     Dosage: UNK
     Route: 048
     Dates: start: 19910101
  5. PERCOCET [Concomitant]
  6. LORA TAB [Concomitant]
  7. LORTAB [Concomitant]
     Route: 048
  8. XANAX [Concomitant]
     Indication: ANXIETY
     Dosage: UNK
     Route: 048
     Dates: start: 20080409
  9. MEFENAMIC ACID [Concomitant]
     Route: 048
  10. DARVOCET [Concomitant]
  11. FLAGYL [Concomitant]
     Route: 048
  12. IBUPROFEN [Concomitant]
     Dosage: UNK
     Dates: start: 19910101

REACTIONS (1)
  - CHOLELITHIASIS [None]
